FAERS Safety Report 19816936 (Version 1)
Quarter: 2021Q3

REPORT INFORMATION
  Report Type: Spontaneous
  Country: CZ (occurrence: CZ)
  Receive Date: 20210910
  Receipt Date: 20210910
  Transmission Date: 20211014
  Serious: Yes (Other)
  Sender: FDA-Public Use
  Company Number: CZ-ARBOR PHARMACEUTICALS, LLC-CZ-2021ARB001071

PATIENT
  Age: 60 Year
  Sex: Male

DRUGS (12)
  1. TRIPTODUR [Suspect]
     Active Substance: TRIPTORELIN
     Indication: PROSTATE CANCER
     Dosage: UNK
     Dates: start: 202101, end: 202108
  2. BICALUTAMIDE. [Suspect]
     Active Substance: BICALUTAMIDE
     Indication: PROSTATE CANCER
     Dosage: UNK
     Route: 048
     Dates: start: 201506, end: 2018
  3. BICALUTAMIDE. [Suspect]
     Active Substance: BICALUTAMIDE
     Dosage: UNK
     Route: 048
     Dates: start: 202004
  4. PRESID                             /00646501/ [Concomitant]
     Indication: PRODUCT USED FOR UNKNOWN INDICATION
     Dosage: 5 MG, ADMINISTERED IN THE MORNING
  5. TRIPTODUR [Suspect]
     Active Substance: TRIPTORELIN
     Indication: PROSTATE CANCER
     Dosage: 11.25 MG
     Dates: start: 2015, end: 2018
  6. APALUTAMIDE [Suspect]
     Active Substance: APALUTAMIDE
     Indication: PROSTATE CANCER
     Dosage: 240 MG, UNK
     Route: 048
     Dates: start: 202101, end: 202101
  7. ADT [Concomitant]
     Active Substance: AMITRIPTYLINE HYDROCHLORIDE
     Indication: PRODUCT USED FOR UNKNOWN INDICATION
     Dosage: 6 M
     Dates: start: 201506, end: 201512
  8. TRIPTODUR [Suspect]
     Active Substance: TRIPTORELIN
     Dosage: UNK
  9. TEZEO [Concomitant]
     Active Substance: TELMISARTAN
     Indication: PRODUCT USED FOR UNKNOWN INDICATION
     Dosage: 80 MG, ADMINISTERED IN THE MORNING
  10. TRIPTODUR [Suspect]
     Active Substance: TRIPTORELIN
  11. ADT [Concomitant]
     Active Substance: AMITRIPTYLINE HYDROCHLORIDE
     Dosage: 6 M
     Dates: start: 202004
  12. TRIPTODUR [Suspect]
     Active Substance: TRIPTORELIN
     Dosage: 11.25 MG
     Dates: start: 202004, end: 202012

REACTIONS (1)
  - Neoplasm progression [Unknown]
